FAERS Safety Report 6109645-4 (Version None)
Quarter: 2009Q1

REPORT INFORMATION
  Report Type: 
  Country: None (occurrence: None)
  Receive Date: 20090310
  Receipt Date: 20080121
  Transmission Date: 20090719
  Serious: No
  Sender: FDA-Public Use
  Company Number: A0704193A

PATIENT
  Age: 61 Year
  Sex: Male

DRUGS (1)
  1. NICORETTE [Suspect]
     Dates: start: 20080112, end: 20080112

REACTIONS (6)
  - BURNING SENSATION [None]
  - LEUKOPLAKIA ORAL [None]
  - MASTICATION DISORDER [None]
  - ORAL PAIN [None]
  - PURULENT DISCHARGE [None]
  - THERMAL BURN [None]
